FAERS Safety Report 15892196 (Version 5)
Quarter: 2019Q1

REPORT INFORMATION
  Report Type: Report from Study
  Country: CA (occurrence: CA)
  Receive Date: 20190130
  Receipt Date: 20190319
  Transmission Date: 20190417
  Serious: Yes (Hospitalization, Other)
  Sender: FDA-Public Use
  Company Number: CA-BRISTOL-MYERS SQUIBB COMPANY-BMS-2019-006361

PATIENT
  Age: 41 Year
  Sex: Male

DRUGS (1)
  1. ABATACEPT [Suspect]
     Active Substance: ABATACEPT
     Indication: RHEUMATOID ARTHRITIS
     Dosage: 1250 MICROGRAM, Q4WK
     Route: 042
     Dates: start: 20180910

REACTIONS (5)
  - Productive cough [Unknown]
  - Urinary tract infection [Recovering/Resolving]
  - Abdominal pain [Not Recovered/Not Resolved]
  - Hypertension [Unknown]
  - Pneumonia [Unknown]

NARRATIVE: CASE EVENT DATE: 20190117
